FAERS Safety Report 4356996-X (Version None)
Quarter: 2004Q2

REPORT INFORMATION
  Report Type: 
  Country: None (occurrence: None)
  Receive Date: 20040507
  Receipt Date: 20040416
  Transmission Date: 20050107
  Serious: Yes (Other)
  Sender: FDA-Public Use
  Company Number: US_0404102320

PATIENT
  Age: 78 Year

DRUGS (1)
  1. XIGRIS [Suspect]
     Indication: UROSEPSIS
     Dates: start: 20030117, end: 20030121

REACTIONS (3)
  - HAEMATOCRIT DECREASED [None]
  - HAEMOGLOBIN DECREASED [None]
  - PLATELET COUNT DECREASED [None]
